FAERS Safety Report 8857262 (Version 2)
Quarter: 2012Q4

REPORT INFORMATION
  Report Type: 
  Country: AU (occurrence: AU)
  Receive Date: 20121024
  Receipt Date: 20121029
  Transmission Date: 20130627
  Serious: Yes (Life-Threatening, Hospitalization, Other)
  Sender: FDA-Public Use
  Company Number: AU-009507513-1210AUS009537

PATIENT
  Age: 53 Year
  Sex: Male
  Weight: 63 kg

DRUGS (3)
  1. VICTRELIS 200 MG [Suspect]
     Dosage: 800 mg, tid
     Route: 048
     Dates: end: 20121017
  2. PEGINTERFERON ALFA-2B [Suspect]
     Dosage: 100 mg, UNK
     Route: 058
     Dates: end: 20121017
  3. RIBAVIRIN [Suspect]
     Dosage: 800 mg, UNK
     Route: 048
     Dates: end: 20121017

REACTIONS (2)
  - Suicide attempt [Not Recovered/Not Resolved]
  - Depression [Not Recovered/Not Resolved]
